FAERS Safety Report 9002360 (Version 1)
Quarter: 2013Q1

REPORT INFORMATION
  Report Type: Spontaneous
  Country: IT (occurrence: IT)
  Receive Date: 20130107
  Receipt Date: 20130107
  Transmission Date: 20140127
  Serious: Yes (Other)
  Sender: FDA-Public Use
  Company Number: IT-PFIZER INC-2013001724

PATIENT
  Age: 32 Year
  Sex: Female
  Weight: 63 kg

DRUGS (7)
  1. FARMORUBICINA [Suspect]
     Indication: BREAST CANCER
     Dosage: 127.5 MG, CYCLIC
     Route: 042
     Dates: start: 20121121
  2. DOCETAXEL [Suspect]
     Indication: BREAST CANCER
     Dosage: 127.5 MG, CYCLIC
     Route: 042
     Dates: start: 20121121
  3. ENDOXAN [Suspect]
     Dosage: 850 MG, CYCLIC
     Route: 042
     Dates: start: 20121121
  4. ONDANSETRON [Concomitant]
     Indication: BREAST CANCER
     Dosage: 8 MG, UNK
     Route: 042
     Dates: start: 20121121
  5. CHLORPHENAMINE [Concomitant]
     Indication: BREAST CANCER
     Dosage: 10 MG, UNK
     Route: 042
     Dates: start: 20121121
  6. SOLDESAM [Concomitant]
     Indication: BREAST CANCER
     Dosage: 8 MG, UNK
     Dates: start: 20121121
  7. RANIDIL [Concomitant]
     Indication: BREAST CANCER
     Dosage: 100 MG, UNK
     Route: 042
     Dates: start: 20121121

REACTIONS (9)
  - Abdominal pain [Recovering/Resolving]
  - Bone pain [Recovering/Resolving]
  - Conjunctivitis [Recovering/Resolving]
  - Headache [Recovering/Resolving]
  - Lymphadenopathy [Recovering/Resolving]
  - Tachycardia [Recovering/Resolving]
  - Burn oesophageal [Recovering/Resolving]
  - Conjunctivitis [None]
  - Abdominal pain [None]
